FAERS Safety Report 19971016 (Version 1)
Quarter: 2021Q4

REPORT INFORMATION
  Report Type: Spontaneous
  Country: US (occurrence: US)
  Receive Date: 20211019
  Receipt Date: 20211019
  Transmission Date: 20220303
  Serious: No
  Sender: FDA-Public Use
  Company Number: US-BOEHRINGERINGELHEIM-2021-BI-132934

PATIENT
  Age: 80 Year
  Sex: Male

DRUGS (2)
  1. JARDIANCE [Suspect]
     Active Substance: EMPAGLIFLOZIN
     Indication: Diabetes mellitus
     Dosage: 5 MG ONCE A DAY
     Dates: start: 202109, end: 202110
  2. METFORMIN [Concomitant]
     Active Substance: METFORMIN HYDROCHLORIDE
     Indication: Diabetes mellitus
     Dosage: 1 A DAY

REACTIONS (3)
  - Fungal infection [Recovering/Resolving]
  - Weight decreased [Unknown]
  - Intentional underdose [Unknown]

NARRATIVE: CASE EVENT DATE: 20210901
